FAERS Safety Report 14320970 (Version 1)
Quarter: 2017Q4

REPORT INFORMATION
  Report Type: Spontaneous
  Country: ES (occurrence: ES)
  Receive Date: 20171223
  Receipt Date: 20171223
  Transmission Date: 20180321
  Serious: Yes (Other)
  Sender: FDA-Public Use
  Company Number: ES-BION-006831

PATIENT
  Age: 36 Year
  Sex: Male

DRUGS (1)
  1. VALPROIC ACID UNKNOWN [Suspect]
     Active Substance: VALPROIC ACID
     Indication: EPILEPSY

REACTIONS (2)
  - Stevens-Johnson syndrome [Unknown]
  - Therapeutic product cross-reactivity [Unknown]
